FAERS Safety Report 6240037-3 (Version None)
Quarter: 2009Q2

REPORT INFORMATION
  Report Type: 
  Country: None (occurrence: None)
  Receive Date: 20090623
  Receipt Date: 20090612
  Transmission Date: 20091009
  Serious: Yes (Hospitalization, Other)
  Sender: FDA-Public Use
  Company Number: US-ROCHE-621457

PATIENT
  Sex: Female

DRUGS (4)
  1. PEG-INTERFERON A-2A (RO 25-8310) [Suspect]
     Indication: HEPATITIS C
     Dosage: FORM: PREFILLED SYRINGE, ANOTHER INDICATION: HIV CO-INFECTION
     Route: 065
     Dates: start: 20081202
  2. PEG-INTERFERON A-2A (RO 25-8310) [Suspect]
     Dosage: DOSE REDUCED
     Route: 065
     Dates: start: 20090312, end: 20090324
  3. RIBAVIRIN [Suspect]
     Indication: HEPATITIS C
     Dosage: DIVIDED DOSES, ADDITIONAL INDICATION: HIV CO-INFECTION
     Route: 065
     Dates: start: 20081202
  4. RIBAVIRIN [Suspect]
     Dosage: DOSE REDUCED
     Route: 065
     Dates: start: 20090312, end: 20090324

REACTIONS (10)
  - DYSPEPSIA [None]
  - FATIGUE [None]
  - FLATULENCE [None]
  - HAEMOGLOBIN DECREASED [None]
  - NAUSEA [None]
  - NEOPLASM MALIGNANT [None]
  - PYREXIA [None]
  - T-LYMPHOCYTE COUNT DECREASED [None]
  - VOMITING [None]
  - WHITE BLOOD CELL COUNT DECREASED [None]
